FAERS Safety Report 8200417-3 (Version None)
Quarter: 2012Q1

REPORT INFORMATION
  Report Type: 
  Country: None (occurrence: None)
  Receive Date: 20120312
  Receipt Date: 20120306
  Transmission Date: 20120608
  Serious: Yes (Other)
  Sender: FDA-Public Use
  Company Number: US-PFIZER INC-2012060344

PATIENT
  Sex: Female
  Weight: 67.1 kg

DRUGS (7)
  1. DEPO-PROVERA [Suspect]
     Indication: MENSTRUAL DISCOMFORT
  2. CLOBAZAM [Concomitant]
     Indication: COMPLEX PARTIAL SEIZURES
     Dosage: UNK
  3. KEPPRA [Concomitant]
     Indication: COMPLEX PARTIAL SEIZURES
     Dosage: UNK
  4. DEPO-PROVERA [Suspect]
     Indication: OFF LABEL USE
     Dosage: UNK, EVERY THREE MONTHS
     Route: 030
     Dates: start: 20111128
  5. DILANTIN [Concomitant]
     Indication: COMPLEX PARTIAL SEIZURES
     Dosage: UNK
  6. RUFINAMIDE [Concomitant]
     Indication: COMPLEX PARTIAL SEIZURES
     Dosage: UNK
  7. FOLIC ACID [Concomitant]
     Indication: COMPLEX PARTIAL SEIZURES
     Dosage: UNK

REACTIONS (3)
  - CONVULSION [None]
  - FATIGUE [None]
  - SOMNOLENCE [None]
